FAERS Safety Report 12212910 (Version 5)
Quarter: 2016Q4

REPORT INFORMATION
  Report Type: Report from Study
  Country: US (occurrence: US)
  Receive Date: 20160328
  Receipt Date: 20161129
  Transmission Date: 20170207
  Serious: Yes (Hospitalization, Other)
  Sender: FDA-Public Use
  Company Number: PHEH2016US006965

PATIENT
  Age: 73 Year
  Sex: Male
  Weight: 90.7 kg

DRUGS (3)
  1. LASIX [Concomitant]
     Active Substance: FUROSEMIDE
     Indication: PRODUCT USED FOR UNKNOWN INDICATION
     Route: 065
  2. POTASSIUM [Concomitant]
     Active Substance: POTASSIUM
     Indication: PRODUCT USED FOR UNKNOWN INDICATION
     Dosage: QD (EVERY MORNING)
     Route: 065
  3. ENTRESTO [Suspect]
     Active Substance: SACUBITRIL\VALSARTAN
     Indication: CARDIAC FAILURE CONGESTIVE
     Dosage: 50 MG, BID
     Route: 048
     Dates: start: 201602

REACTIONS (6)
  - Peripheral swelling [Unknown]
  - Cardiac failure congestive [Unknown]
  - Muscle spasms [Unknown]
  - Malaise [Unknown]
  - Carbon monoxide poisoning [Unknown]
  - Asbestosis [Unknown]

NARRATIVE: CASE EVENT DATE: 20160228
